FAERS Safety Report 21231685 (Version 1)
Quarter: 2022Q3

REPORT INFORMATION
  Report Type: Spontaneous
  Country: US (occurrence: None)
  Receive Date: 20220819
  Receipt Date: 20220819
  Transmission Date: 20221026
  Serious: Yes (Other)
  Sender: FDA-Public Use
  Company Number: US-ROCHE-3158479

PATIENT
  Sex: Female

DRUGS (2)
  1. AVASTIN [Suspect]
     Active Substance: BEVACIZUMAB
     Indication: Product used for unknown indication
     Route: 065
  2. RUBRACA [Suspect]
     Active Substance: RUCAPARIB CAMSYLATE
     Indication: Ovarian cancer
     Route: 048

REACTIONS (7)
  - Pneumonia [Unknown]
  - Headache [Unknown]
  - Blood pressure increased [Unknown]
  - Swelling face [Unknown]
  - Peripheral swelling [Unknown]
  - Joint swelling [Unknown]
  - Aphonia [Unknown]
